FAERS Safety Report 5320124-4 (Version None)
Quarter: 2007Q2

REPORT INFORMATION
  Report Type: 
  Country: None (occurrence: None)
  Receive Date: 20070502
  Receipt Date: 20070419
  Transmission Date: 20071010
  Serious: Yes (Other)
  Sender: FDA-Public Use
  Company Number: 2007317527

PATIENT
  Age: 75 Year
  Sex: Male
  Weight: 80.7403 kg

DRUGS (12)
  1. NASALCROM [Suspect]
     Indication: HYPERSENSITIVITY
     Dosage: ONE SPRAY PER NOSTRIL ONCE DAILY (1 IN 1 D), NASAL
     Route: 045
     Dates: start: 20050701, end: 20070301
  2. NASONEX [Suspect]
     Indication: HYPERSENSITIVITY
     Dosage: ONCE AT NIGHT (1 IN 1 D), NASAL
     Route: 045
     Dates: start: 20050701
  3. ZYRTEC [Concomitant]
  4. LORAZEPAM [Concomitant]
  5. ATENOLOL [Concomitant]
  6. NORVASC [Concomitant]
  7. AZITHROMYCIN [Concomitant]
  8. DETROL LA [Concomitant]
  9. ALTACE [Concomitant]
  10. LIPITOR [Concomitant]
  11. ALLOPURINOL [Concomitant]
  12. NEXIUM [Concomitant]

REACTIONS (3)
  - BLOOD DISORDER [None]
  - EPISTAXIS [None]
  - NEOPLASM [None]
